FAERS Safety Report 10078893 (Version 1)
Quarter: 2014Q2

REPORT INFORMATION
  Report Type: Spontaneous
  Country: CA (occurrence: None)
  Receive Date: 20140411
  Receipt Date: 20140411
  Transmission Date: 20141212
  Serious: Yes (Other)
  Sender: FDA-Public Use
  Company Number: CA-010144

PATIENT
  Age: 87 Year
  Sex: Male

DRUGS (10)
  1. DEGARELIX (FIRMAGON) 80 MG [Suspect]
     Indication: PROSTATE CANCER
     Route: 058
     Dates: start: 201112
  2. ADALAT [Concomitant]
  3. TICLID [Concomitant]
  4. ASA [Concomitant]
  5. CALCIUM [Concomitant]
  6. VIT D [Concomitant]
  7. HYDROCHLROOTHIAZIDE [Concomitant]
  8. MS-CONTIN [Concomitant]
  9. LACTULOSE [Concomitant]
  10. SENOKOT [Concomitant]

REACTIONS (9)
  - Drug ineffective [None]
  - Constipation [None]
  - Decreased appetite [None]
  - Faeces discoloured [None]
  - Hepatic neoplasm [None]
  - Confusional state [None]
  - Oedema [None]
  - Cough [None]
  - Metastases to liver [None]
